FAERS Safety Report 4292215-0 (Version None)
Quarter: 2004Q1

REPORT INFORMATION
  Report Type: 
  Country: None (occurrence: None)
  Receive Date: 20040126
  Receipt Date: 20031013
  Transmission Date: 20041129
  Serious: No
  Sender: FDA-Public Use
  Company Number: USA030843615

PATIENT
  Age: 67 Year
  Sex: Female

DRUGS (12)
  1. FORTEO [Suspect]
     Indication: OSTEOPOROSIS
     Dosage: 20 UG/DAY
     Dates: start: 20030730
  2. EVISTA [Suspect]
     Indication: OSTEOPOROSIS
     Dates: start: 19980101
  3. EVISTA [Concomitant]
  4. CLONAZEPAM [Concomitant]
  5. TIZANIDINE HCL [Concomitant]
  6. VITAMIN B6 [Concomitant]
  7. SLOW MAG (MAGNESIUM CHLORIDE ANHYDROUS) [Concomitant]
  8. SLO-NIACIN (NICOTINIC ACID) [Concomitant]
  9. TYLENOL [Concomitant]
  10. VITAMIN CAP [Concomitant]
  11. VITAMIN C [Concomitant]
  12. CALCIUM [Concomitant]

REACTIONS (10)
  - ABDOMINAL PAIN UPPER [None]
  - BACK PAIN [None]
  - CHEST PAIN [None]
  - CONSTIPATION [None]
  - DRUG INEFFECTIVE [None]
  - FATIGUE [None]
  - HEADACHE [None]
  - HEART RATE INCREASED [None]
  - LOOSE STOOLS [None]
  - NAUSEA [None]
